FAERS Safety Report 9828683 (Version 1)
Quarter: 2014Q1

REPORT INFORMATION
  Report Type: Spontaneous
  Country: BR (occurrence: BR)
  Receive Date: 20140117
  Receipt Date: 20140117
  Transmission Date: 20141002
  Serious: Yes (Other)
  Sender: FDA-Public Use
  Company Number: BR-ELI_LILLY_AND_COMPANY-BR201401001677

PATIENT
  Age: 52 Year
  Sex: Female
  Weight: 81 kg

DRUGS (8)
  1. HUMALOG [Suspect]
     Indication: DIABETES MELLITUS
     Dosage: 5 IU, OTHER
     Route: 065
     Dates: start: 2010
  2. HUMALOG [Suspect]
     Dosage: 10 IU, OTHER
     Route: 065
     Dates: start: 2010
  3. HUMALOG [Suspect]
     Dosage: 15 IU, OTHER
     Route: 065
     Dates: start: 2010
  4. HUMALOG [Suspect]
     Dosage: 20 IU, OTHER
     Route: 065
     Dates: start: 2010
  5. HUMALOG [Suspect]
     Indication: DIABETES MELLITUS
     Dosage: UNK UNK, UNKNOWN
     Route: 065
  6. LANTUS [Concomitant]
     Indication: PRODUCT USED FOR UNKNOWN INDICATION
     Dosage: UNK, OTHER
     Route: 065
  7. NOVOLIN NPH [Concomitant]
     Indication: PRODUCT USED FOR UNKNOWN INDICATION
     Dosage: UNK, UNKNOWN
     Route: 065
  8. RIBAVIRIN [Concomitant]
     Indication: PRODUCT USED FOR UNKNOWN INDICATION
     Dosage: UNK, UNKNOWN
     Route: 065

REACTIONS (4)
  - Renal failure [Unknown]
  - Anaemia [Not Recovered/Not Resolved]
  - Memory impairment [Not Recovered/Not Resolved]
  - Blood glucose increased [Unknown]
